FAERS Safety Report 12111451 (Version 1)
Quarter: 2016Q1

REPORT INFORMATION
  Report Type: Report from Study
  Country: US (occurrence: US)
  Receive Date: 20160224
  Receipt Date: 20160224
  Transmission Date: 20160526
  Serious: Yes (Hospitalization)
  Sender: FDA-Public Use
  Company Number: US-ACTELION-A-NJ2016-131674

PATIENT
  Age: 69 Year
  Sex: Female

DRUGS (2)
  1. PRADAXA [Concomitant]
     Active Substance: DABIGATRAN ETEXILATE MESYLATE
  2. TRACLEER [Suspect]
     Active Substance: BOSENTAN
     Indication: PULMONARY ARTERIAL HYPERTENSION
     Dosage: UNK
     Route: 048

REACTIONS (7)
  - Anaemia [Unknown]
  - Haemoglobin decreased [Unknown]
  - Transfusion [Unknown]
  - Infection [Recovered/Resolved]
  - Pneumonia [Recovered/Resolved]
  - Asthenia [Unknown]
  - Dyspnoea [Unknown]
